FAERS Safety Report 12743156 (Version 3)
Quarter: 2016Q3

REPORT INFORMATION
  Report Type: Report from Study
  Country: CH (occurrence: CH)
  Receive Date: 20160914
  Receipt Date: 20160926
  Transmission Date: 20161109
  Serious: Yes (Other)
  Sender: FDA-Public Use
  Company Number: CH-BAYER-2016-150562

PATIENT
  Age: 24 Year
  Sex: Female
  Weight: 64 kg

DRUGS (1)
  1. JAYDESS [Suspect]
     Active Substance: LEVONORGESTREL
     Indication: CONTRACEPTION
     Dosage: 14 MCG/24HR, CONT
     Route: 015
     Dates: start: 201601, end: 201607

REACTIONS (7)
  - Haemorrhage in pregnancy [Recovered/Resolved]
  - Drug ineffective [Unknown]
  - Dysmenorrhoea [None]
  - Hysterectomy [None]
  - Abortion spontaneous [Recovered/Resolved]
  - Menorrhagia [None]
  - Pregnancy with contraceptive device [Recovered/Resolved]

NARRATIVE: CASE EVENT DATE: 2016
